FAERS Safety Report 10911834 (Version 1)
Quarter: 2015Q1

REPORT INFORMATION
  Report Type: Spontaneous
  Country: US (occurrence: None)
  Receive Date: 20150128
  Receipt Date: 20150128
  Transmission Date: 20150721
  Serious: No
  Sender: FDA-Public Use
  Company Number: 2014TUS011358

PATIENT
  Age: 32 Year
  Sex: Female
  Weight: 49.9 kg

DRUGS (1)
  1. BRINTELLIX [Suspect]
     Active Substance: VORTIOXETINE HYDROBROMIDE
     Indication: DEPRESSION
     Dosage: 10 MG SAMPLES (ONE TABLET), QD, ORAL
     Route: 048

REACTIONS (1)
  - Hypoglycaemia [None]
